FAERS Safety Report 17799978 (Version 2)
Quarter: 2020Q3

REPORT INFORMATION
  Report Type: Other
  Country: US (occurrence: US)
  Receive Date: 20200518
  Receipt Date: 20200901
  Transmission Date: 20201102
  Serious: Yes (Other)
  Sender: FDA-Public Use
  Company Number: US-AMAG PHARMACEUTICALS, INC.-AMAG202001775

PATIENT
  Age: 0 Year
  Sex: Female
  Weight: 2.18 kg

DRUGS (1)
  1. MAKENA [Suspect]
     Active Substance: HYDROXYPROGESTERONE CAPROATE
     Indication: FOETAL EXPOSURE DURING PREGNANCY
     Dosage: 250 MG/ML WEEKLY
     Route: 064
     Dates: start: 20200102, end: 20200429

REACTIONS (2)
  - Premature baby [Unknown]
  - Nonreassuring foetal heart rate pattern [Recovered/Resolved]

NARRATIVE: CASE EVENT DATE: 20200430
